FAERS Safety Report 4318599-2 (Version None)
Quarter: 2004Q1

REPORT INFORMATION
  Report Type: 
  Country: None (occurrence: None)
  Receive Date: 20040315
  Receipt Date: 20040303
  Transmission Date: 20041129
  Serious: No
  Sender: FDA-Public Use
  Company Number: 200410073BYL

PATIENT
  Age: 66 Year
  Sex: Male
  Weight: 62 kg

DRUGS (7)
  1. GLUCOBAY [Suspect]
     Indication: DIABETES MELLITUS
     Dosage: 100 MG, BID, ORAL
     Route: 048
     Dates: start: 20021001, end: 20040101
  2. GLIMICRON (GLICLAZIDE) [Suspect]
     Indication: DIABETES MELLITUS
     Dosage: 40 MG, BID, ORAL
     Route: 048
     Dates: start: 19800101, end: 20040101
  3. ADALAT [Concomitant]
  4. CALSLOT [Concomitant]
  5. MAINTATE [Concomitant]
  6. PROHEPARUM [Concomitant]
  7. MUCOSTA [Concomitant]

REACTIONS (1)
  - GAMMA-GLUTAMYLTRANSFERASE INCREASED [None]
